FAERS Safety Report 8990760 (Version 2)
Quarter: 2013Q1

REPORT INFORMATION
  Report Type: Spontaneous
  Country: JP (occurrence: JP)
  Receive Date: 20121228
  Receipt Date: 20130129
  Transmission Date: 20140127
  Serious: Yes (Hospitalization, Disabling, Other)
  Sender: FDA-Public Use
  Company Number: JP-B.I. PHARMACEUTICALS,INC./RIDGEFIELD-2012-BI-04160NB

PATIENT
  Age: 74 Year
  Sex: Male
  Weight: 48 kg

DRUGS (22)
  1. PRAZAXA [Suspect]
     Indication: ATRIAL FIBRILLATION
     Dosage: 220 MG
     Route: 048
     Dates: end: 20120822
  2. BASEN OD [Concomitant]
     Dosage: 0.9 MG
     Route: 048
  3. VOGLIBOSE OD [Concomitant]
     Dosage: 0.9 MG
     Route: 065
  4. EDIROL [Concomitant]
     Dosage: 0.5 MCG
     Route: 065
  5. AMIODARONE HYDROCHLORIDE [Concomitant]
     Dosage: 100 MG
     Route: 065
  6. ANCARON [Concomitant]
     Dosage: 100 MG
     Route: 065
  7. EPINAZION [Concomitant]
     Dosage: 40 MG
     Route: 065
  8. PREDONINE [Concomitant]
     Dosage: 0.5 MG
     Route: 065
  9. LUPRAC [Concomitant]
     Dosage: 4 MG
     Route: 065
  10. KLARICID [Concomitant]
     Dosage: 200 MG
     Route: 065
  11. CLARITH [Concomitant]
     Dosage: 200 MG
     Route: 065
  12. AMARYL [Concomitant]
     Dosage: 3 MG
     Route: 065
  13. AMBROXOL HYDROCHLORIDE [Concomitant]
     Dosage: 45 MG
     Route: 065
  14. VASOLAN [Concomitant]
     Dosage: 120 MG
     Route: 065
  15. ACTOS [Concomitant]
     Dosage: 15 MG
     Route: 065
  16. PIOGLITAZONE OD [Concomitant]
     Dosage: 15 MG
     Route: 065
  17. THEODUR [Concomitant]
     Dosage: 200 MG
     Route: 048
  18. ONON [Concomitant]
     Dosage: 450 MG
     Route: 048
  19. EQUA [Concomitant]
     Dosage: 100 MG
     Route: 048
  20. LENDORMIN D [Concomitant]
     Dosage: 0.25 MG
     Route: 048
  21. ADOAIR [Concomitant]
  22. GEBEN [Concomitant]
     Route: 065

REACTIONS (4)
  - Cerebral haemorrhage [Recovered/Resolved with Sequelae]
  - Sepsis [Recovered/Resolved]
  - Diabetes mellitus inadequate control [Not Recovered/Not Resolved]
  - Pneumonia aspiration [Recovered/Resolved]
